FAERS Safety Report 21854823 (Version 1)
Quarter: 2023Q1

REPORT INFORMATION
  Report Type: Spontaneous
  Country: BE (occurrence: BE)
  Receive Date: 20230112
  Receipt Date: 20230112
  Transmission Date: 20230418
  Serious: Yes (Disabling)
  Sender: FDA-Public Use
  Company Number: None

PATIENT
  Age: 35 Year
  Sex: Female
  Weight: 73 kg

DRUGS (2)
  1. VENLAFAXINE [Suspect]
     Active Substance: VENLAFAXINE HYDROCHLORIDE
     Indication: Product used for unknown indication
     Dosage: UNK
     Route: 065
  2. MIRTAZAPINE [Suspect]
     Active Substance: MIRTAZAPINE
     Indication: Depression
     Dosage: 1 TIME BEFORE SLEEPING, END DATE IS NOT SCHEDULED
     Route: 048
     Dates: start: 20171208

REACTIONS (3)
  - Blood glucose fluctuation [Not Recovered/Not Resolved]
  - Insulin resistance [Not Recovered/Not Resolved]
  - Carbohydrate tolerance decreased [Not Recovered/Not Resolved]
